FAERS Safety Report 7057337-X (Version None)
Quarter: 2010Q4

REPORT INFORMATION
  Report Type: 
  Country: None (occurrence: None)
  Receive Date: 20101021
  Receipt Date: 20101021
  Transmission Date: 20110411
  Serious: Yes (Hospitalization)
  Sender: FDA-Public Use
  Company Number: None

PATIENT
  Age: 66 Year
  Sex: Male
  Weight: 86 kg

DRUGS (2)
  1. AZITHROMYCIN [Suspect]
     Dosage: EVERY DAY PO
     Route: 048
     Dates: start: 20100312, end: 20100317
  2. NIASPAN [Suspect]
     Dosage: 1000 MG BID PO
     Route: 048
     Dates: start: 20040814, end: 20100420

REACTIONS (4)
  - COUGH [None]
  - HEPATIC ENZYME INCREASED [None]
  - JAUNDICE [None]
  - WEIGHT DECREASED [None]
